FAERS Safety Report 23297854 (Version 1)
Quarter: 2023Q4

REPORT INFORMATION
  Report Type: Spontaneous
  Country: CN (occurrence: None)
  Receive Date: 20231214
  Receipt Date: 20231214
  Transmission Date: 20240110
  Serious: Yes (Hospitalization, Other)
  Sender: FDA-Public Use
  Company Number: 2023A283457

PATIENT
  Age: 87 Year
  Sex: Female

DRUGS (1)
  1. DAPAGLIFLOZIN [Suspect]
     Active Substance: DAPAGLIFLOZIN
     Indication: Cardiac dysfunction
     Route: 048
     Dates: start: 20231123, end: 20231129

REACTIONS (6)
  - Hypoglycaemia [Recovering/Resolving]
  - Atrial fibrillation [Unknown]
  - Diarrhoea [Unknown]
  - Abdominal distension [Unknown]
  - Oedema peripheral [Unknown]
  - Tachypnoea [Unknown]

NARRATIVE: CASE EVENT DATE: 20231124
